FAERS Safety Report 5904615-0 (Version None)
Quarter: 2008Q4

REPORT INFORMATION
  Report Type: 
  Country: None (occurrence: None)
  Receive Date: 20081001
  Receipt Date: 20080919
  Transmission Date: 20090506
  Serious: Yes (Other)
  Sender: FDA-Public Use
  Company Number: JP-PFIZER INC-2008078212

PATIENT

DRUGS (2)
  1. VFEND [Suspect]
  2. MYSLEE [Suspect]
     Route: 048

REACTIONS (1)
  - NO ADVERSE EVENT [None]
